FAERS Safety Report 5789349-8 (Version None)
Quarter: 2008Q2

REPORT INFORMATION
  Report Type: 
  Country: None (occurrence: None)
  Receive Date: 20080626
  Receipt Date: 20080612
  Transmission Date: 20081010
  Serious: Yes (Hospitalization)
  Sender: FDA-Public Use
  Company Number: FR-ELI_LILLY_AND_COMPANY-FR200804007003

PATIENT
  Age: 48 Year
  Sex: Female

DRUGS (1)
  1. ZYPREXA [Suspect]
     Indication: ABNORMAL BEHAVIOUR
     Dosage: 10 MG, DAILY (1/D)
     Route: 048
     Dates: start: 20071019, end: 20080428

REACTIONS (3)
  - HYPERAMYLASAEMIA [None]
  - LEUKOPENIA [None]
  - NEUTROPENIA [None]
